FAERS Safety Report 5156456-2 (Version None)
Quarter: 2006Q4

REPORT INFORMATION
  Report Type: 
  Country: None (occurrence: None)
  Receive Date: 20061113
  Receipt Date: 20061031
  Transmission Date: 20070319
  Serious: Yes (Hospitalization)
  Sender: FDA-Public Use
  Company Number: 2006112819

PATIENT
  Age: 36 Year
  Sex: Female
  Weight: 45.3597 kg

DRUGS (8)
  1. CHANTIX [Suspect]
     Indication: SMOKING CESSATION THERAPY
     Dosage: 0.5 MG (0.5 MG, 1 IN 1 D)
     Dates: start: 20060914
  2. WARFARIN SODIUM [Concomitant]
  3. DIGOXIN [Concomitant]
  4. MONTELUKAST SODIUM (MONTELUKAST SODIUM) [Concomitant]
  5. DILANTIN [Concomitant]
  6. LEXAPRO [Concomitant]
  7. ROBAXIN [Concomitant]
  8. LEVSIN (HYOSCYAMINE SULFATE) [Concomitant]

REACTIONS (6)
  - CONDITION AGGRAVATED [None]
  - CONFUSIONAL STATE [None]
  - FEELING ABNORMAL [None]
  - FIBROMYALGIA [None]
  - PAIN [None]
  - SPEECH DISORDER [None]
